FAERS Safety Report 18794503 (Version 1)
Quarter: 2021Q1

REPORT INFORMATION
  Report Type: Spontaneous
  Country: US (occurrence: US)
  Receive Date: 20210126
  Receipt Date: 20210126
  Transmission Date: 20210419
  Serious: No
  Sender: FDA-Public Use
  Company Number: None

PATIENT
  Age: 66 Year
  Sex: Female

DRUGS (1)
  1. ERLOTINIB TAB 100MG [Suspect]
     Active Substance: ERLOTINIB
     Route: 048
     Dates: start: 20180105

REACTIONS (2)
  - Pain in extremity [None]
  - Transient ischaemic attack [None]

NARRATIVE: CASE EVENT DATE: 20200701
